FAERS Safety Report 21217113 (Version 1)
Quarter: 2022Q3

REPORT INFORMATION
  Report Type: Spontaneous
  Country: US (occurrence: None)
  Receive Date: 20220816
  Receipt Date: 20220816
  Transmission Date: 20221027
  Serious: No
  Sender: FDA-Public Use
  Company Number: US-ROCHE-3056171

PATIENT
  Age: 84 Year
  Sex: Female
  Weight: 44.946 kg

DRUGS (2)
  1. ALECENSA [Suspect]
     Active Substance: ALECTINIB HYDROCHLORIDE
     Indication: Lung cancer metastatic
     Dosage: 600 MG ORALLY TWICE DAILY
     Route: 048
     Dates: start: 20220221
  2. MIRTAZAPINE [Concomitant]
     Active Substance: MIRTAZAPINE
     Dates: end: 20220302

REACTIONS (4)
  - Rash [Recovered/Resolved]
  - Pyrexia [Recovered/Resolved]
  - Fatigue [Recovered/Resolved]
  - Speech disorder [Not Recovered/Not Resolved]

NARRATIVE: CASE EVENT DATE: 20220303
